FAERS Safety Report 25204377 (Version 4)
Quarter: 2025Q2

REPORT INFORMATION
  Report Type: Spontaneous
  Country: GB (occurrence: GB)
  Receive Date: 20250416
  Receipt Date: 20250519
  Transmission Date: 20250717
  Serious: Yes (Death, Other)
  Sender: MYLAN
  Company Number: GB-MYLANLABS-2024M1098200

PATIENT
  Age: 31 Year
  Sex: Female
  Weight: 72.9 kg

DRUGS (11)
  1. CLOZARIL [Suspect]
     Active Substance: CLOZAPINE
     Indication: Schizophrenia
     Dosage: UNK, BID (100MG MORNING AND 275 MG NIGHT)
     Dates: start: 20090527
  2. CLOZARIL [Suspect]
     Active Substance: CLOZAPINE
     Indication: Schizoaffective disorder
  3. AMISULPRIDE [Concomitant]
     Active Substance: AMISULPRIDE
     Dosage: 150 MILLIGRAM, BID
  4. SCOPOLAMINE HYDROBROMIDE [Concomitant]
     Active Substance: SCOPOLAMINE HYDROBROMIDE
     Dosage: 300 MICROGRAM, BID
  5. ATORVASTATIN [Concomitant]
     Active Substance: ATORVASTATIN
     Dosage: 40 MILLIGRAM, PM (NIGHT)
  6. CHOLECALCIFEROL [Concomitant]
     Active Substance: CHOLECALCIFEROL
     Dosage: 800 INTERNATIONAL UNIT, AM (MORNING)
  7. METFORMIN [Concomitant]
     Active Substance: METFORMIN HYDROCHLORIDE
     Dosage: 850 MILLIGRAM, QD (OD)
  8. RAMIPRIL [Concomitant]
     Active Substance: RAMIPRIL
     Dosage: 5 MILLIGRAM, AM (MORNING)
  9. FERROUS FUMARATE [Concomitant]
     Active Substance: FERROUS FUMARATE
     Dosage: 210 MILLIGRAM, QD (OD)
  10. ACETAMINOPHEN [Concomitant]
     Active Substance: ACETAMINOPHEN
  11. POLYETHYLENE GLYCOL 3350\POTASSIUM CHLORIDE\SODIUM BICARBONATE\SODIUM [Concomitant]
     Active Substance: POLYETHYLENE GLYCOL 3350\POTASSIUM CHLORIDE\SODIUM BICARBONATE\SODIUM CHLORIDE

REACTIONS (6)
  - Syncope [Fatal]
  - Neuroendocrine carcinoma metastatic [Unknown]
  - Plasma cell myeloma [Unknown]
  - Anaemia [Not Recovered/Not Resolved]
  - Differential white blood cell count abnormal [Unknown]
  - Off label use [Unknown]

NARRATIVE: CASE EVENT DATE: 20090527
